FAERS Safety Report 9269746 (Version 2)
Quarter: 2013Q2

REPORT INFORMATION
  Report Type: Spontaneous
  Country: JP (occurrence: JP)
  Receive Date: 20130503
  Receipt Date: 20130522
  Transmission Date: 20140414
  Serious: Yes (Other)
  Sender: FDA-Public Use
  Company Number: JP-OTSUKA-JP-2013-11180

PATIENT
  Age: 78 Year
  Sex: Male
  Weight: 52 kg

DRUGS (12)
  1. SAMSCA [Suspect]
     Indication: CARDIAC FAILURE CONGESTIVE
     Dosage: 15 MG/DAY OR 7.5 MG/DAY
     Route: 048
     Dates: start: 20130109
  2. SAMSCA [Suspect]
     Dosage: 15 MG MILLIGRAM(S), QD
     Route: 048
     Dates: start: 20130318, end: 20130320
  3. MAINTATE [Suspect]
     Indication: ATRIAL FIBRILLATION
     Dosage: 5 MG MILLIGRAM(S), QD
     Route: 048
     Dates: start: 20130318, end: 20130321
  4. LASIX [Suspect]
     Indication: CARDIAC FAILURE CONGESTIVE
     Dosage: 20 MG MILLIGRAM(S), QD
     Route: 041
     Dates: start: 20130318, end: 20130321
  5. SOLDEM 3AG [Concomitant]
     Indication: FLUID REPLACEMENT
     Dosage: 500 ML MILLILITRE(S), BID
     Route: 041
     Dates: start: 20130318, end: 20130321
  6. LUPRAC [Concomitant]
     Indication: CARDIAC FAILURE CONGESTIVE
     Dosage: 8 MG MILLIGRAM(S), QD
     Route: 048
     Dates: end: 20130321
  7. PRAZAXA [Concomitant]
     Indication: ATRIAL FIBRILLATION
     Dosage: 110 MG MILLIGRAM(S), BID
     Route: 048
     Dates: end: 20130321
  8. MAGMITT [Concomitant]
     Indication: CONSTIPATION
     Dosage: 250 MG MILLIGRAM(S), TID
     Route: 048
     Dates: end: 20130321
  9. TANATRIL [Concomitant]
     Indication: HYPERTENSION
     Dosage: 5 MG MILLIGRAM(S), QD
     Route: 048
     Dates: end: 20130321
  10. SPIRIVA [Concomitant]
     Indication: ASTHMA
     Dosage: 18 MCG, QD
     Route: 055
     Dates: end: 20130321
  11. XALATAN [Concomitant]
     Indication: GLAUCOMA
     Dosage: UNK, QD, OU
     Route: 047
     Dates: end: 20130321
  12. COSOPT [Concomitant]
     Indication: GLAUCOMA
     Dosage: UNK, BID, OD
     Route: 047
     Dates: end: 20130321

REACTIONS (3)
  - Hepatic function abnormal [Unknown]
  - Thrombocytopenia [Unknown]
  - Blood urea increased [Unknown]
